FAERS Safety Report 8761870 (Version 2)
Quarter: 2012Q4

REPORT INFORMATION
  Report Type: Spontaneous
  Country: PL (occurrence: None)
  Receive Date: 20120822
  Receipt Date: 20121011
  Transmission Date: 20130627
  Serious: Yes (Hospitalization)
  Sender: FDA-Public Use
  Company Number: CAPT20120001

PATIENT
  Age: 35 Year
  Sex: Female

DRUGS (1)
  1. CAPTOPRIL [Suspect]
     Indication: HYPERTENSION

REACTIONS (3)
  - Polyglandular autoimmune syndrome type III [None]
  - Hypoglycaemic coma [None]
  - Insulin autoimmune syndrome [None]
